FAERS Safety Report 23938862 (Version 1)
Quarter: 2024Q2

REPORT INFORMATION
  Report Type: Spontaneous
  Country: US (occurrence: US)
  Receive Date: 20240604
  Receipt Date: 20240604
  Transmission Date: 20240716
  Serious: No
  Sender: FDA-Public Use
  Company Number: US-PERRIGO-23US007583

PATIENT
  Sex: Female

DRUGS (18)
  1. MICONAZOLE NITRATE [Suspect]
     Active Substance: MICONAZOLE NITRATE
     Indication: Vulvovaginal swelling
     Dosage: UNKNOWN, UNKNOWN
     Route: 067
     Dates: start: 20230629
  2. SYNTHROID [Concomitant]
     Active Substance: LEVOTHYROXINE SODIUM
     Indication: Thyroid cancer
     Dosage: UNK
     Route: 065
     Dates: start: 2003
  3. XANAX [Concomitant]
     Active Substance: ALPRAZOLAM
     Indication: Insomnia
     Dosage: 0.5 MG, UNK
     Route: 065
     Dates: start: 2003
  4. SYMBICORT [Concomitant]
     Active Substance: BUDESONIDE\FORMOTEROL FUMARATE DIHYDRATE
     Indication: Nasal congestion
     Dosage: ONE PUFF, QHS
     Route: 065
  5. SYMBICORT [Concomitant]
     Active Substance: BUDESONIDE\FORMOTEROL FUMARATE DIHYDRATE
     Indication: Perennial allergy
  6. VITAMIN D3 [Concomitant]
     Active Substance: CHOLECALCIFEROL
     Indication: Product used for unknown indication
     Dosage: UNK
     Route: 065
     Dates: start: 2003
  7. HYALURONIC ACID [Concomitant]
     Active Substance: HYALURONIC ACID
     Indication: Mobility decreased
     Dosage: UNK
     Route: 065
     Dates: start: 2003
  8. B COMPLEX PLUS C [Concomitant]
     Indication: Product used for unknown indication
     Dosage: UNK
     Route: 065
     Dates: start: 2003
  9. COENZYME Q10 [Concomitant]
     Active Substance: DIETARY SUPPLEMENT\UBIDECARENONE
     Indication: Product used for unknown indication
     Dosage: UNK
     Route: 065
     Dates: start: 2003
  10. MAGNESIUM ACETATE [Concomitant]
     Active Substance: MAGNESIUM ACETATE
     Indication: Supplementation therapy
     Dosage: 500 MG, UNK
     Route: 065
     Dates: start: 2003
  11. GINKGO [Concomitant]
     Active Substance: GINKGO
     Indication: Memory impairment
     Dosage: UNK
     Route: 065
     Dates: start: 2003
  12. DIETARY SUPPLEMENT\RESVERATROL [Concomitant]
     Active Substance: DIETARY SUPPLEMENT\RESVERATROL
     Indication: Asthenia
     Dosage: UNK
     Route: 065
     Dates: start: 2003
  13. VITAMIN C [Concomitant]
     Active Substance: ASCORBIC ACID
     Indication: Asthenia
     Dosage: UNK
     Route: 065
     Dates: start: 2003
  14. CALCIUM [Concomitant]
     Active Substance: CALCIUM
     Indication: Asthenia
     Dosage: UNK
     Route: 065
     Dates: start: 2003
  15. LOSARTAN [Concomitant]
     Active Substance: LOSARTAN
     Indication: Hypertension
     Dosage: UNK
     Route: 065
     Dates: start: 2003
  16. ROSUVASTATIN [Concomitant]
     Active Substance: ROSUVASTATIN
     Indication: Dyspepsia
     Dosage: UNK
     Route: 065
     Dates: start: 2003
  17. ROSUVASTATIN [Concomitant]
     Active Substance: ROSUVASTATIN
     Indication: Dyspepsia
  18. MOVEX [ACECLOFENAC] [Concomitant]
     Indication: Arthropathy
     Dosage: UNK
     Route: 065
     Dates: start: 2018

REACTIONS (2)
  - Dysuria [Not Recovered/Not Resolved]
  - Off label use [Unknown]

NARRATIVE: CASE EVENT DATE: 20230629
